FAERS Safety Report 13980466 (Version 2)
Quarter: 2017Q4

REPORT INFORMATION
  Report Type: Spontaneous
  Country: FR (occurrence: FR)
  Receive Date: 20170918
  Receipt Date: 20171006
  Transmission Date: 20180321
  Serious: Yes (Hospitalization, Other)
  Sender: FDA-Public Use
  Company Number: FR-AMGEN-FRASP2017138695

PATIENT
  Sex: Female

DRUGS (2)
  1. BIPRETERAX [Concomitant]
     Active Substance: INDAPAMIDE\PERINDOPRIL
     Indication: HYPERTENSION
     Dosage: UNK
  2. PROLIA [Suspect]
     Active Substance: DENOSUMAB
     Indication: PRODUCT USED FOR UNKNOWN INDICATION
     Dosage: UNK
     Route: 065

REACTIONS (6)
  - Hypomagnesaemia [Recovering/Resolving]
  - Paraesthesia [Recovering/Resolving]
  - Hypokalaemia [Recovering/Resolving]
  - Hypophosphataemia [Not Recovered/Not Resolved]
  - Electrolyte imbalance [Recovering/Resolving]
  - Tetany [Recovering/Resolving]
